FAERS Safety Report 10249941 (Version 2)
Quarter: 2022Q1

REPORT INFORMATION
  Report Type: Spontaneous
  Country: US (occurrence: US)
  Receive Date: 20140620
  Receipt Date: 20220328
  Transmission Date: 20220424
  Serious: Yes (Life-Threatening, Hospitalization, Other)
  Sender: FDA-Public Use
  Company Number: US-BAYER-2014-090286

PATIENT
  Age: 15 Year
  Sex: Male
  Weight: 56.7 kg

DRUGS (2)
  1. NAPROXEN SODIUM [Suspect]
     Active Substance: NAPROXEN SODIUM
     Dosage: 150 DF, ONCE (TOTAL DOSE 33,000 MG)
     Route: 048
  2. IBUPROFEN [Suspect]
     Active Substance: IBUPROFEN
     Dosage: 50 DF, ONCE (TOTAL DOSE 10,000 MG)

REACTIONS (5)
  - Hypovolaemic shock [Recovered/Resolved]
  - Adrenal insufficiency [Recovered/Resolved]
  - Metabolic acidosis [Recovered/Resolved]
  - Intentional overdose [Recovered/Resolved]
  - Suicidal behaviour [None]
